FAERS Safety Report 25259385 (Version 1)
Quarter: 2025Q2

REPORT INFORMATION
  Report Type: Spontaneous
  Country: ES (occurrence: ES)
  Receive Date: 20250501
  Receipt Date: 20250501
  Transmission Date: 20250716
  Serious: Yes (Other)
  Sender: ROCHE
  Company Number: ES-ROCHE-10000244188

PATIENT
  Age: 81 Year
  Sex: Female

DRUGS (5)
  1. VABYSMO [Suspect]
     Active Substance: FARICIMAB-SVOA
     Indication: Diabetic retinal oedema
     Dosage: TREATMENT REGIMEN/FREQUENCY: 3Q4
     Route: 050
     Dates: start: 20241210, end: 20250312
  2. OZURDEX [Concomitant]
     Active Substance: DEXAMETHASONE
     Indication: Diabetic retinal oedema
     Route: 050
     Dates: start: 20180320, end: 20250312
  3. OZURDEX [Concomitant]
     Active Substance: DEXAMETHASONE
     Route: 050
     Dates: start: 20180531, end: 20240813
  4. BRIMVERA [Concomitant]
     Indication: Ocular hypertension
     Dosage: LEFT EYE
     Route: 061
     Dates: start: 20210919
  5. MOXI [Concomitant]
     Route: 048

REACTIONS (6)
  - Iritis [Not Recovered/Not Resolved]
  - Iridocyclitis [Not Recovered/Not Resolved]
  - Uveitis [Not Recovered/Not Resolved]
  - Vitritis [Not Recovered/Not Resolved]
  - Endophthalmitis [Unknown]
  - Blindness [Unknown]

NARRATIVE: CASE EVENT DATE: 20250324
